FAERS Safety Report 20592022 (Version 4)
Quarter: 2022Q4

REPORT INFORMATION
  Report Type: Spontaneous
  Country: CA (occurrence: CA)
  Receive Date: 20220314
  Receipt Date: 20221128
  Transmission Date: 20230113
  Serious: Yes (Other)
  Sender: FDA-Public Use
  Company Number: CA-PFIZER INC-202200380891

PATIENT
  Age: 52 Year
  Sex: Male
  Weight: 140 kg

DRUGS (48)
  1. AMLODIPINE BESYLATE [Suspect]
     Active Substance: AMLODIPINE BESYLATE
     Indication: Secondary progressive multiple sclerosis
     Dosage: 10 MG
     Route: 048
  2. GABAPENTIN [Suspect]
     Active Substance: GABAPENTIN
     Dosage: 100 MG
     Route: 065
  3. LORAZEPAM [Suspect]
     Active Substance: LORAZEPAM
     Route: 048
  4. BACLOFEN [Suspect]
     Active Substance: BACLOFEN
     Dosage: 10 MG
     Route: 048
  5. BACLOFEN [Suspect]
     Active Substance: BACLOFEN
     Dosage: 30 MG, 1 EVERY 8 HOURS
     Route: 048
  6. BISOPROLOL [Suspect]
     Active Substance: BISOPROLOL
     Indication: Secondary progressive multiple sclerosis
     Dosage: UNK
     Route: 046
  7. BISOPROLOL [Suspect]
     Active Substance: BISOPROLOL
     Dosage: UNK
     Route: 048
  8. BISOPROLOL [Suspect]
     Active Substance: BISOPROLOL
     Dosage: UNK
     Route: 048
  9. DOXEPIN HYDROCHLORIDE [Suspect]
     Active Substance: DOXEPIN HYDROCHLORIDE
     Dosage: 0.6 MG
     Route: 065
  10. DOXEPIN HYDROCHLORIDE [Suspect]
     Active Substance: DOXEPIN HYDROCHLORIDE
     Dosage: 6 MG
     Route: 065
  11. PRAMIPEXOLE DIHYDROCHLORIDE [Suspect]
     Active Substance: PRAMIPEXOLE DIHYDROCHLORIDE
     Dosage: 0.25 MG
     Route: 048
  12. RABEPRAZOLE [Suspect]
     Active Substance: RABEPRAZOLE
     Dosage: UNK
     Route: 048
  13. REBIF [Suspect]
     Active Substance: INTERFERON BETA-1A
     Dosage: UNK
     Route: 058
  14. REBIF [Suspect]
     Active Substance: INTERFERON BETA-1A
  15. ROSUVASTATIN CALCIUM [Suspect]
     Active Substance: ROSUVASTATIN CALCIUM
     Dosage: 5 MG
     Route: 048
  16. TAMSULOSIN [Suspect]
     Active Substance: TAMSULOSIN
     Indication: Secondary progressive multiple sclerosis
     Dosage: UNK
     Route: 048
  17. TECFIDERA [Suspect]
     Active Substance: DIMETHYL FUMARATE
     Dosage: UNK
     Route: 065
  18. TECFIDERA [Suspect]
     Active Substance: DIMETHYL FUMARATE
     Dosage: UNK
     Route: 065
  19. DALFAMPRIDINE [Suspect]
     Active Substance: DALFAMPRIDINE
     Dosage: UNK
     Route: 065
  20. LORAZEPAM [Concomitant]
     Active Substance: LORAZEPAM
     Dosage: UNK
     Route: 046
  21. ALLOPURINOL [Concomitant]
     Active Substance: ALLOPURINOL
     Dosage: UNK
     Route: 048
  22. AMINOBENZOIC ACID [Concomitant]
     Active Substance: AMINOBENZOIC ACID
     Dosage: UNK
     Route: 065
  23. ASPIRIN [Concomitant]
     Active Substance: ASPIRIN
     Dosage: UNK
     Route: 065
  24. ASPIRIN [Concomitant]
     Active Substance: ASPIRIN
     Dosage: 81 MG
     Route: 065
  25. ATIVAN [Concomitant]
     Active Substance: LORAZEPAM
     Dosage: 0.5 MG
     Route: 065
  26. BIOTIN [Concomitant]
     Active Substance: BIOTIN
     Dosage: UNK
     Route: 065
  27. CALCIUM [Concomitant]
     Active Substance: CALCIUM
     Dosage: UNK
     Route: 065
  28. CALCIUM PANTOTHENATE [Concomitant]
     Active Substance: CALCIUM PANTOTHENATE
     Dosage: UNK
     Route: 065
  29. CALCIUM PHOSPHATE, DIBASIC, ANHYDROUS [Concomitant]
     Active Substance: CALCIUM PHOSPHATE, DIBASIC, ANHYDROUS
     Dosage: UNK
     Route: 065
  30. CHOLINE BITARTRATE [Concomitant]
     Active Substance: CHOLINE BITARTRATE
     Dosage: UNK
     Route: 065
  31. COBAMAMIDE [Concomitant]
     Active Substance: COBAMAMIDE
     Dosage: UNK
     Route: 065
  32. CODEINE [Concomitant]
     Active Substance: CODEINE
     Dosage: UNK
     Route: 065
  33. CUPRIC OXIDE\FOLIC ACID\NIACIN\ZINC OXIDE [Concomitant]
     Active Substance: CUPRIC OXIDE\FOLIC ACID\NIACIN\ZINC OXIDE
     Dosage: UNK
     Route: 065
  34. DALFAMPRIDINE [Concomitant]
     Active Substance: DALFAMPRIDINE
     Dosage: UNK
     Route: 065
  35. FOLIC ACID [Concomitant]
     Active Substance: FOLIC ACID
     Dosage: UNK
     Route: 065
  36. INOSITOL [Concomitant]
     Active Substance: INOSITOL
     Dosage: UNK
     Route: 065
  37. PYRIDOXINE HYDROCHLORIDE [Concomitant]
     Active Substance: PYRIDOXINE HYDROCHLORIDE
     Dosage: UNK
     Route: 065
  38. RABEPRAZOLE SODIUM [Concomitant]
     Active Substance: RABEPRAZOLE SODIUM
     Dosage: UNK
  39. RABEPRAZOLE SODIUM [Concomitant]
     Active Substance: RABEPRAZOLE SODIUM
     Dosage: UNK
     Route: 065
  40. RIBOFLAVIN [Concomitant]
     Active Substance: RIBOFLAVIN
     Dosage: UNK
     Route: 065
  41. THIAMINE HYDROCHLORIDE [Concomitant]
     Active Substance: THIAMINE HYDROCHLORIDE
     Dosage: UNK
     Route: 065
  42. VITAMIN C [Concomitant]
     Active Substance: ASCORBIC ACID
     Dosage: UNK
     Route: 065
  43. VITAMIN D3 [Concomitant]
     Active Substance: CHOLECALCIFEROL
     Dosage: UNK
  44. VITAMIN D3 [Concomitant]
     Active Substance: CHOLECALCIFEROL
     Dosage: UNK
     Route: 065
  45. NICOTINAMIDE [Concomitant]
     Active Substance: NIACINAMIDE
  46. VITAMIN B12 [Concomitant]
     Active Substance: CYANOCOBALAMIN
  47. ACETYLSALICYLIC ACID/CODEINE [Concomitant]
     Dosage: 81 MG
     Route: 065
  48. ALLOPURINOL\BENZBROMARONE [Concomitant]
     Active Substance: ALLOPURINOL\BENZBROMARONE
     Route: 048

REACTIONS (25)
  - Off label use [Recovered/Resolved]
  - Bradycardia [Recovered/Resolved]
  - Erectile dysfunction [Recovered/Resolved]
  - Multiple sclerosis relapse [Recovered/Resolved]
  - Relapsing-remitting multiple sclerosis [Recovered/Resolved]
  - Anxiety [Recovered/Resolved]
  - Ataxia [Recovered/Resolved]
  - Balance disorder [Recovered/Resolved]
  - Central nervous system lesion [Recovered/Resolved]
  - Dizziness [Recovered/Resolved]
  - Dysarthria [Recovered/Resolved]
  - Fall [Recovered/Resolved]
  - Gait spastic [Recovered/Resolved]
  - Hypertonic bladder [Recovered/Resolved]
  - Hypoaesthesia [Recovered/Resolved]
  - Insomnia [Recovered/Resolved]
  - Memory impairment [Recovered/Resolved]
  - Monoparesis [Recovered/Resolved]
  - Movement disorder [Recovered/Resolved]
  - Muscle spasticity [Recovered/Resolved]
  - Needle fatigue [Recovered/Resolved]
  - Nocturia [Recovered/Resolved]
  - Micturition urgency [Recovered/Resolved]
  - Pain [Recovered/Resolved]
  - Pollakiuria [Recovered/Resolved]
